FAERS Safety Report 9859750 (Version 3)
Quarter: 2014Q2

REPORT INFORMATION
  Report Type: Spontaneous
  Country: DE (occurrence: DE)
  Receive Date: 20140131
  Receipt Date: 20140401
  Transmission Date: 20141212
  Serious: Yes (Other)
  Sender: FDA-Public Use
  Company Number: DE-AMGEN-DEUSP2014006042

PATIENT
  Age: 82 Year
  Sex: Male
  Weight: 100 kg

DRUGS (6)
  1. XGEVA [Suspect]
     Indication: PROSTATE CANCER
     Dosage: 120 MG, Q4WK
     Route: 058
     Dates: start: 20131202, end: 20140204
  2. XGEVA [Suspect]
     Indication: METASTASES TO BONE
  3. NIFEDIPINE [Concomitant]
     Dosage: 20 MG, BID
     Route: 048
  4. RANITIDIN [Concomitant]
     Dosage: 300 MG, QD
     Route: 048
  5. FLUTAMID [Concomitant]
     Dosage: 250 MG, TID
     Route: 048
  6. MARCUMAR [Concomitant]
     Route: 048

REACTIONS (2)
  - Depressed mood [Recovered/Resolved]
  - Aggression [Recovered/Resolved]
